FAERS Safety Report 6838981-9 (Version None)
Quarter: 2010Q3

REPORT INFORMATION
  Report Type: 
  Country: None (occurrence: None)
  Receive Date: 20100713
  Receipt Date: 20080505
  Transmission Date: 20110219
  Serious: No
  Sender: FDA-Public Use
  Company Number: PFIZER INC-2007050523

PATIENT
  Sex: Female
  Weight: 59.1 kg

DRUGS (2)
  1. CHANTIX [Suspect]
     Indication: SMOKING CESSATION THERAPY
     Dates: start: 20070610
  2. TRANXENE [Concomitant]
     Indication: ANXIETY

REACTIONS (4)
  - HEADACHE [None]
  - MIDDLE INSOMNIA [None]
  - NIGHTMARE [None]
  - PRODUCT QUALITY ISSUE [None]
